FAERS Safety Report 7248877-9 (Version None)
Quarter: 2011Q1

REPORT INFORMATION
  Report Type: 
  Country: None (occurrence: None)
  Receive Date: 20110128
  Receipt Date: 20110118
  Transmission Date: 20110831
  Serious: Yes (Other)
  Sender: FDA-Public Use
  Company Number: NL-ASTELLAS-2011EU000265

PATIENT
  Age: 42 Year
  Sex: Male

DRUGS (1)
  1. PROTOPIC [Suspect]
     Indication: ECZEMA
     Dosage: 0.1 %, OTHER
     Route: 061
     Dates: start: 20100113

REACTIONS (1)
  - CHEST DISCOMFORT [None]
